FAERS Safety Report 20384634 (Version 3)
Quarter: 2021Q4

REPORT INFORMATION
  Report Type: Report from Study
  Country: CN (occurrence: CN)
  Receive Date: 20220127
  Receipt Date: 20211031
  Transmission Date: 20220303
  Serious: Yes (Other)
  Sender: FDA-Public Use
  Company Number: CN-BRISTOL-MYERS SQUIBB COMPANY-BMS-2022-010438

PATIENT
  Age: 68 Year
  Sex: Male

DRUGS (2)
  1. NIVOLUMAB [Suspect]
     Active Substance: NIVOLUMAB
     Indication: Gastric cancer
     Dosage: 200 MILLIGRAM, Q3WK
     Route: 041
     Dates: start: 20210608
  2. PACLITAXEL [Concomitant]
     Active Substance: PACLITAXEL
     Indication: Gastric cancer
     Dosage: UNK
     Route: 065
     Dates: start: 20220116

REACTIONS (6)
  - Malignant neoplasm progression [Unknown]
  - Fall [Unknown]
  - Lower limb fracture [Not Recovered/Not Resolved]
  - Hand fracture [Not Recovered/Not Resolved]
  - Asthenia [Unknown]
  - Off label use [Unknown]

NARRATIVE: CASE EVENT DATE: 20211113
